FAERS Safety Report 16000298 (Version 2)
Quarter: 2019Q1

REPORT INFORMATION
  Report Type: Spontaneous
  Country: US (occurrence: US)
  Receive Date: 20190225
  Receipt Date: 20190313
  Transmission Date: 20190418
  Serious: Yes (Hospitalization)
  Sender: FDA-Public Use
  Company Number: US-VELOXIS PHARMACEUTICALS, INC.-2019VELUS1408

PATIENT
  Age: 70 Year
  Sex: Female

DRUGS (3)
  1. TACROLIMUS. [Suspect]
     Active Substance: TACROLIMUS
     Indication: TRANSPLANT REJECTION
     Dosage: UNK
     Route: 065
  2. RITUXIMAB. [Concomitant]
     Active Substance: RITUXIMAB
     Indication: TRANSPLANT REJECTION
  3. AZATHIOPRINE. [Concomitant]
     Active Substance: AZATHIOPRINE
     Indication: TRANSPLANT REJECTION

REACTIONS (4)
  - Systemic inflammatory response syndrome [Recovered/Resolved]
  - Strongyloidiasis [Recovered/Resolved]
  - Klebsiella test positive [Recovered/Resolved]
  - Intentional product use issue [Unknown]
